FAERS Safety Report 4952995-5 (Version None)
Quarter: 2006Q1

REPORT INFORMATION
  Report Type: 
  Country: None (occurrence: None)
  Receive Date: 20060324
  Receipt Date: 20060111
  Transmission Date: 20060701
  Serious: Yes (Other)
  Sender: FDA-Public Use
  Company Number: PHBS2006JP00827

PATIENT
  Sex: Female

DRUGS (5)
  1. SANDOSTATIN [Suspect]
     Indication: CARCINOID TUMOUR
     Route: 065
  2. MULTIVITAMIN [Suspect]
  3. DEXTROSE [Suspect]
  4. AMINO ACIDS [Suspect]
  5. ELECTROLYTES NOS [Suspect]

REACTIONS (2)
  - DRUG INTERACTION [None]
  - NASOGASTRIC OUTPUT HIGH [None]
